FAERS Safety Report 5014455-5 (Version None)
Quarter: 2006Q2

REPORT INFORMATION
  Report Type: 
  Country: None (occurrence: None)
  Receive Date: 20060531
  Receipt Date: 20060410
  Transmission Date: 20061013
  Serious: Yes (Disabling)
  Sender: FDA-Public Use
  Company Number: US-BRISTOL-MYERS SQUIBB COMPANY-13341441

PATIENT
  Age: 72 Year
  Sex: Female
  Weight: 66 kg

DRUGS (8)
  1. ORENCIA [Suspect]
     Indication: RHEUMATOID ARTHRITIS
     Route: 042
     Dates: start: 20060321, end: 20060404
  2. METFORMIN HYDROCHLORIDE [Concomitant]
  3. METHOTREXATE [Concomitant]
  4. AVANDIA [Concomitant]
  5. VIACTIV [Concomitant]
  6. PREDNISONE [Concomitant]
  7. ISOSORBIDE [Concomitant]
  8. FOLATE [Concomitant]

REACTIONS (3)
  - AMNESIA [None]
  - CONFUSIONAL STATE [None]
  - INSOMNIA [None]
